FAERS Safety Report 6476709-5 (Version None)
Quarter: 2009Q4

REPORT INFORMATION
  Report Type: 
  Country: None (occurrence: None)
  Receive Date: 20091202
  Receipt Date: 20091118
  Transmission Date: 20100525
  Serious: Yes (Death)
  Sender: FDA-Public Use
  Company Number: JHP200900397

PATIENT
  Age: 20 Year
  Sex: Female

DRUGS (4)
  1. KETALAR [Suspect]
  2. METHYLENEDIOXYMETHAMPHETAMINE (METHYLENEDIOXYMETHAMPHETAMINE) [Suspect]
     Indication: DRUG ABUSE
  3. FLUNITRAZEPAM (FLUNITRAZEPAM) [Suspect]
  4. DIAZEPAM [Suspect]

REACTIONS (2)
  - COMPLETED SUICIDE [None]
  - POISONING DELIBERATE [None]
